FAERS Safety Report 4630932-0 (Version None)
Quarter: 2005Q2

REPORT INFORMATION
  Report Type: 
  Country: None (occurrence: None)
  Receive Date: 20050407
  Receipt Date: 20050407
  Transmission Date: 20051028
  Serious: Yes (Hospitalization)
  Sender: FDA-Public Use
  Company Number: None

PATIENT
  Age: 84 Year
  Sex: Male
  Weight: 84.3 kg

DRUGS (3)
  1. GLYBURIDE [Suspect]
     Indication: DIABETES MELLITUS
     Dosage: 5MG, 5MG QD, ORAL
     Route: 048
     Dates: start: 20050316, end: 20050317
  2. HUMULIN R [Concomitant]
  3. NOVOLIN R [Concomitant]

REACTIONS (1)
  - HYPOGLYCAEMIA [None]
